FAERS Safety Report 19538717 (Version 1)
Quarter: 2021Q3

REPORT INFORMATION
  Report Type: Spontaneous
  Country: US (occurrence: US)
  Receive Date: 20210714
  Receipt Date: 20210714
  Transmission Date: 20211014
  Serious: No
  Sender: FDA-Public Use
  Company Number: None

PATIENT
  Age: 33 Year
  Sex: Female
  Weight: 86.18 kg

DRUGS (3)
  1. STELARA [Suspect]
     Active Substance: USTEKINUMAB
     Indication: PRODUCT USED FOR UNKNOWN INDICATION
     Dosage: ?          OTHER FREQUENCY:DAY O AND 28;  AS DIRECTED?
     Route: 058
     Dates: start: 201812
  2. STELARA [Suspect]
     Active Substance: USTEKINUMAB
     Indication: DERMATITIS ATOPIC
     Dosage: ?          OTHER FREQUENCY:DAY O AND 28;  AS DIRECTED?
     Route: 058
     Dates: start: 201812
  3. STELARA [Suspect]
     Active Substance: USTEKINUMAB
     Indication: PSORIASIS
     Dosage: ?          OTHER FREQUENCY:DAY O AND 28;  AS DIRECTED?
     Route: 058
     Dates: start: 201812

REACTIONS (3)
  - Blood sodium decreased [None]
  - Fatigue [None]
  - Seizure [None]
